FAERS Safety Report 24592348 (Version 1)
Quarter: 2024Q4

REPORT INFORMATION
  Report Type: Report from Study
  Country: US (occurrence: US)
  Receive Date: 20241108
  Receipt Date: 20241108
  Transmission Date: 20250114
  Serious: Yes (Other)
  Sender: ABBVIE
  Company Number: US-ABBVIE-5988959

PATIENT
  Age: 74 Year
  Sex: Female
  Weight: 73 kg

DRUGS (6)
  1. RESTASIS [Suspect]
     Active Substance: CYCLOSPORINE
     Indication: Dry eye
     Dosage: 1 DROP ON EACH EYE?FORM STRENGTH:0.5MG/ML, START DATE: YEARS AND HALF AGO
     Route: 047
     Dates: start: 2022, end: 202404
  2. SYNTHROID [Concomitant]
     Active Substance: LEVOTHYROXINE SODIUM
     Indication: Product used for unknown indication
  3. VITAMIN B12 [Concomitant]
     Active Substance: CYANOCOBALAMIN
     Indication: Vitamin supplementation
  4. PRAVASTATIN [Concomitant]
     Active Substance: PRAVASTATIN
     Indication: Blood cholesterol abnormal
     Dosage: 20 MG
  5. DULOXETINE [Concomitant]
     Active Substance: DULOXETINE
     Indication: Anxiety
  6. BUDESONIDE [Concomitant]
     Active Substance: BUDESONIDE
     Indication: Colitis microscopic

REACTIONS (3)
  - Corneal dystrophy [Recovering/Resolving]
  - Vision blurred [Recovering/Resolving]
  - Graves^ disease [Not Recovered/Not Resolved]

NARRATIVE: CASE EVENT DATE: 20230101
